FAERS Safety Report 20373759 (Version 1)
Quarter: 2022Q1

REPORT INFORMATION
  Report Type: Spontaneous
  Country: CO (occurrence: CO)
  Receive Date: 20220125
  Receipt Date: 20220125
  Transmission Date: 20220423
  Serious: Yes (Death, Hospitalization)
  Sender: FDA-Public Use
  Company Number: CO-BAXTER-2022BAX001080

PATIENT
  Age: 64 Year
  Sex: Male
  Weight: 38.4 kg

DRUGS (4)
  1. DIANEAL PD-2 WITH DEXTROSE [Suspect]
     Active Substance: CALCIUM CHLORIDE\DEXTROSE\MAGNESIUM CHLORIDE\SODIUM CHLORIDE\SODIUM LACTATE
     Indication: Peritoneal dialysis
     Dosage: 4 BAGS PER DAY
     Route: 033
     Dates: start: 20201104, end: 20220113
  2. NIFEDIPINE [Concomitant]
     Active Substance: NIFEDIPINE
     Indication: Product used for unknown indication
     Dosage: EVERY 12 HOURS
     Route: 065
  3. LOSARTAN [Concomitant]
     Active Substance: LOSARTAN
     Indication: Product used for unknown indication
     Dosage: PER DAY
     Route: 065
  4. LINAGLIPTIN [Concomitant]
     Active Substance: LINAGLIPTIN
     Indication: Product used for unknown indication
     Dosage: EVERY 24 HOURS
     Route: 065

REACTIONS (4)
  - Hypotension [Fatal]
  - Cardio-respiratory arrest [Fatal]
  - Skin ulcer [Unknown]
  - Diabetic complication [Unknown]

NARRATIVE: CASE EVENT DATE: 20211203
